FAERS Safety Report 19484627 (Version 1)
Quarter: 2021Q3

REPORT INFORMATION
  Report Type: Spontaneous
  Country: FR (occurrence: FR)
  Receive Date: 20210701
  Receipt Date: 20210701
  Transmission Date: 20211014
  Serious: Yes (Hospitalization)
  Sender: FDA-Public Use
  Company Number: FR-SERVIER-S21006490

PATIENT

DRUGS (4)
  1. TN UNSPECIFIED [Concomitant]
     Indication: ANGIOCENTRIC LYMPHOMA
     Dosage: 20 MG/M2, FOR 4 DAYS
     Route: 042
  2. ONCASPAR [Suspect]
     Active Substance: PEGASPARGASE
     Indication: ANGIOCENTRIC LYMPHOMA
     Dosage: UNK
     Route: 042
     Dates: start: 20210527
  3. TN UNSPECIFIED [Concomitant]
     Indication: ANGIOCENTRIC LYMPHOMA
     Dosage: 800 MG/M2
     Route: 042
  4. ONCASPAR [Suspect]
     Active Substance: PEGASPARGASE
     Indication: OFF LABEL USE

REACTIONS (2)
  - Hepatitis [Recovering/Resolving]
  - Product use in unapproved indication [Recovered/Resolved]

NARRATIVE: CASE EVENT DATE: 2021
